FAERS Safety Report 7965005-2 (Version None)
Quarter: 2011Q4

REPORT INFORMATION
  Report Type: 
  Country: None (occurrence: None)
  Receive Date: 20111206
  Receipt Date: 20111206
  Transmission Date: 20120403
  Serious: Yes (Hospitalization)
  Sender: FDA-Public Use
  Company Number: None

PATIENT
  Sex: Male

DRUGS (2)
  1. RIBAVIRIN [Suspect]
     Dosage: 1000MG  DAILY PO
     Route: 048
     Dates: start: 20110824, end: 20111115
  2. PEGASYS [Suspect]
     Dosage: 180MCG WQ SQ
     Route: 058
     Dates: start: 20110824, end: 20111115

REACTIONS (2)
  - THROMBOCYTOPENIA [None]
  - ANAEMIA [None]
